FAERS Safety Report 5015796-8 (Version None)
Quarter: 2006Q2

REPORT INFORMATION
  Report Type: 
  Country: None (occurrence: None)
  Receive Date: 20060525
  Receipt Date: 20060518
  Transmission Date: 20061013
  Serious: Yes (Hospitalization)
  Sender: FDA-Public Use
  Company Number: USA-2006-0024254

PATIENT
  Age: 81 Year
  Sex: Male

DRUGS (6)
  1. CEFDITOREN PIVOXIL (SIMILAR TO NDA 21-222 (CEFDITOREN PIVOXIL) [Suspect]
     Indication: BRONCHITIS
     Dosage: 300 MG DAILY ORAL
     Route: 048
     Dates: start: 20060407, end: 20060410
  2. PREDNISOLONE [Concomitant]
  3. HOKUNALIN (TULOBUTEROL HYDROCHLORIDE) [Concomitant]
  4. SEREVENT [Concomitant]
  5. QVAR (BECLOMETASONE DIPROPIONATE) [Concomitant]
  6. MONTELEUKAST SODIUM(MONTELEUKAST SODIUM) [Concomitant]

REACTIONS (5)
  - ALANINE AMINOTRANSFERASE INCREASED [None]
  - ASPARTATE AMINOTRANSFERASE INCREASED [None]
  - BLOOD ALKALINE PHOSPHATASE INCREASED [None]
  - BLOOD LACTATE DEHYDROGENASE INCREASED [None]
  - LIVER DISORDER [None]
